FAERS Safety Report 20542660 (Version 2)
Quarter: 2022Q1

REPORT INFORMATION
  Report Type: Spontaneous
  Country: US (occurrence: US)
  Receive Date: 20220302
  Receipt Date: 20220314
  Transmission Date: 20220423
  Serious: No
  Sender: FDA-Public Use
  Company Number: US-TEVA-2022-US-2010925

PATIENT
  Sex: Male

DRUGS (2)
  1. LEVOFLOXACIN [Interacting]
     Active Substance: LEVOFLOXACIN
     Route: 065
  2. LENVIMA [Interacting]
     Active Substance: LENVATINIB
     Indication: Renal cancer
     Route: 048

REACTIONS (11)
  - Arthralgia [Unknown]
  - Nausea [Unknown]
  - Drug interaction [Unknown]
  - Hypertension [Recovering/Resolving]
  - Thyroid disorder [Recovering/Resolving]
  - Myalgia [Recovering/Resolving]
  - Abdominal pain upper [Recovering/Resolving]
  - Constipation [Recovering/Resolving]
  - Heart rate increased [Recovering/Resolving]
  - Abdominal discomfort [Recovering/Resolving]
  - Abnormal faeces [Recovering/Resolving]
